FAERS Safety Report 8198666-6 (Version None)
Quarter: 2012Q1

REPORT INFORMATION
  Report Type: 
  Country: None (occurrence: None)
  Receive Date: 20120309
  Receipt Date: 20120302
  Transmission Date: 20120608
  Serious: Yes (Hospitalization)
  Sender: FDA-Public Use
  Company Number: US-US-EMD SERONO, INC.-7109119

PATIENT
  Sex: Female
  Weight: 64 kg

DRUGS (1)
  1. REBIF [Suspect]
     Indication: MULTIPLE SCLEROSIS
     Route: 058
     Dates: start: 20071025, end: 20120124

REACTIONS (8)
  - MYALGIA [None]
  - ASTHENIA [None]
  - PYREXIA [None]
  - ANXIETY [None]
  - NECK PAIN [None]
  - HEADACHE [None]
  - DYSPNOEA [None]
  - LEUKOCYTOSIS [None]
